FAERS Safety Report 4758662-5 (Version None)
Quarter: 2005Q3

REPORT INFORMATION
  Report Type: 
  Country: None (occurrence: None)
  Receive Date: 20050830
  Receipt Date: 20050830
  Transmission Date: 20060218
  Serious: Yes (Other)
  Sender: FDA-Public Use
  Company Number: None

PATIENT
  Sex: Female
  Weight: 63.9572 kg

DRUGS (4)
  1. EPZICOM [Suspect]
     Indication: HIV INFECTION
     Dosage: ONE QD PO
     Route: 048
     Dates: start: 20050816, end: 20050828
  2. NEXIUM [Concomitant]
  3. HYDROCODONE [Concomitant]
  4. NUTRITIONAL SUPPLEMENTS [Concomitant]

REACTIONS (8)
  - ARTHRALGIA [None]
  - CHILLS [None]
  - DRUG HYPERSENSITIVITY [None]
  - HEADACHE [None]
  - MALAISE [None]
  - MYALGIA [None]
  - PYREXIA [None]
  - RASH [None]
